FAERS Safety Report 16982239 (Version 1)
Quarter: 2019Q4

REPORT INFORMATION
  Report Type: Spontaneous
  Country: ES (occurrence: ES)
  Receive Date: 20191101
  Receipt Date: 20191101
  Transmission Date: 20200122
  Serious: Yes (Hospitalization)
  Sender: FDA-Public Use
  Company Number: ES-TEVA-2019-ES-1130527

PATIENT
  Age: 67 Year
  Sex: Male
  Weight: 78 kg

DRUGS (6)
  1. ENALAPRIL 10 MG 28 COMPRIMIDOS [Suspect]
     Active Substance: ENALAPRIL
     Dosage: 10 MILLIGRAM DAILY; 28 TABLETS; 1-0-0
     Route: 048
     Dates: start: 20190821
  2. PANTECTA 20 MG COMPRIMIDOS GASTRORRESISTENTES [Suspect]
     Active Substance: PANTOPRAZOLE SODIUM
     Dosage: 20 MILLIGRAM DAILY; 1-0-0
     Route: 048
     Dates: start: 20190731
  3. ATORVASTATINA (7400A) [Suspect]
     Active Substance: ATORVASTATIN
     Indication: PROPHYLAXIS
     Dosage: 40 MG EVERY 24 H, 0-0-1
     Route: 048
     Dates: start: 20190731, end: 20191013
  4. ADIRO 100 MG COMPRIMIDOS GASTRORRESISTENTES EFG [Suspect]
     Active Substance: ASPIRIN
     Dosage: 100 MILLIGRAM DAILY; 0-1-0
     Route: 048
     Dates: start: 20190731
  5. CLOPIDOGREL [Suspect]
     Active Substance: CLOPIDOGREL BISULFATE
     Dosage: 75 MILLIGRAM DAILY; 1-0-0
     Route: 048
     Dates: start: 20190731
  6. OLMETEC 20 MG COMPRIMIDOS RECUBIERTOS [Suspect]
     Active Substance: OLMESARTAN MEDOXOMIL
     Dosage: 20 MILLIGRAM DAILY; 1-0-0
     Route: 048
     Dates: start: 20190731

REACTIONS (1)
  - Hepatitis toxic [Recovering/Resolving]

NARRATIVE: CASE EVENT DATE: 20191014
